FAERS Safety Report 8614813-3 (Version None)
Quarter: 2012Q3

REPORT INFORMATION
  Report Type: 
  Country: None (occurrence: None)
  Receive Date: 20120823
  Receipt Date: 20120808
  Transmission Date: 20120928
  Serious: Yes (Hospitalization, Other)
  Sender: FDA-Public Use
  Company Number: NL-PFIZER INC-2012176187

PATIENT
  Age: 62 Year
  Sex: Male

DRUGS (7)
  1. TIOTROPIUM [Concomitant]
     Indication: PRODUCT USED FOR UNKNOWN INDICATION
     Dosage: UNK
     Route: 055
  2. SPIRONOLACTONE [Suspect]
     Indication: HYPERTENSION
     Dosage: 50 MG, PER DAY
     Route: 065
  3. SALMETEROL [Concomitant]
     Indication: PRODUCT USED FOR UNKNOWN INDICATION
     Dosage: UNK
     Route: 055
  4. FLUTICASONE [Concomitant]
     Indication: PRODUCT USED FOR UNKNOWN INDICATION
     Dosage: UNK
     Route: 055
  5. FUROSEMIDE [Suspect]
     Indication: OEDEMA PERIPHERAL
     Dosage: 40 MG, PER DAY
     Route: 065
  6. PERINDOPRIL [Suspect]
     Indication: HYPERTENSION
     Dosage: 4 MG, PER DAY
     Route: 065
  7. LICORICE [Suspect]
     Indication: PRODUCT USED FOR UNKNOWN INDICATION
     Dosage: 300 MG, DAILY
     Route: 065

REACTIONS (14)
  - HYPERALDOSTERONISM [None]
  - HYPOKALAEMIA [None]
  - HYPERTENSION [None]
  - METABOLIC ALKALOSIS [None]
  - EMPHYSEMA [None]
  - DRUG ABUSE [None]
  - ELECTROLYTE DEPLETION [None]
  - RESPIRATORY ACIDOSIS [None]
  - DYSPNOEA [None]
  - OEDEMA [None]
  - GLOMERULAR FILTRATION RATE DECREASED [None]
  - RENIN INCREASED [None]
  - VENTRICULAR TACHYCARDIA [None]
  - ALKALOSIS [None]
